FAERS Safety Report 8596232-1 (Version None)
Quarter: 2012Q3

REPORT INFORMATION
  Report Type: 
  Country: None (occurrence: None)
  Receive Date: 20120815
  Receipt Date: 20120806
  Transmission Date: 20120928
  Serious: Yes (Other)
  Sender: FDA-Public Use
  Company Number: EG-AMGEN-EGYCT2012049628

PATIENT
  Age: 5 Year
  Sex: Female

DRUGS (2)
  1. ROMIPLOSTIM [Suspect]
     Indication: THROMBOCYTOPENIA
     Dosage: 1 MUG/KG, QWK
  2. METHYLPREDNISOLONE [Concomitant]
     Dosage: 10 MG/KG, UNK

REACTIONS (4)
  - NASOPHARYNGITIS [None]
  - THERAPEUTIC RESPONSE DECREASED [None]
  - PLATELET COUNT INCREASED [None]
  - DRUG DOSE OMISSION [None]
